FAERS Safety Report 6506907-3 (Version None)
Quarter: 2009Q4

REPORT INFORMATION
  Report Type: 
  Country: None (occurrence: None)
  Receive Date: 20091221
  Receipt Date: 20091216
  Transmission Date: 20100525
  Serious: Yes (Death, Hospitalization)
  Sender: FDA-Public Use
  Company Number: JP-SANOFI-AVENTIS-200912067JP

PATIENT
  Age: 76 Year
  Sex: Female
  Weight: 48.5 kg

DRUGS (15)
  1. GLIMEPIRIDE [Suspect]
     Indication: TYPE 2 DIABETES MELLITUS
     Dosage: DOSE AS USED: 1 TABLET
     Route: 048
     Dates: start: 20080910, end: 20090724
  2. ORAL BLOOD GLUCOSE LOWERING DRUGS [Suspect]
     Indication: TYPE 2 DIABETES MELLITUS
     Dosage: DOSE AS USED: 1 TABLET
     Route: 048
     Dates: start: 20081204, end: 20090724
  3. ADALAT CC [Concomitant]
     Indication: HYPERTENSION
     Dosage: DOSE AS USED: 1 TABLET DOSE UNIT: 20 MG
     Route: 048
     Dates: start: 20060210, end: 20090724
  4. DIOVANE [Concomitant]
     Indication: HYPERTENSION
     Dosage: DOSE AS USED: 1 TABLET DOSE UNIT: 40 MG
     Route: 048
     Dates: start: 20060516, end: 20090724
  5. MEVALOTIN [Concomitant]
     Indication: LIPID METABOLISM DISORDER
     Dosage: DOSE AS USED: 1 TABLET
     Route: 048
     Dates: start: 20060620, end: 20090724
  6. MYSLEE [Concomitant]
     Indication: INSOMNIA
     Dosage: DOSE AS USED: 1 TABLET
     Route: 048
     Dates: start: 20080610, end: 20090724
  7. OPALMON [Concomitant]
     Indication: ILIAC ARTERY OCCLUSION
     Dosage: DOSE AS USED: 1 TABLET DOSE UNIT: 5 UG
     Route: 048
     Dates: start: 20090519, end: 20090724
  8. MUCOSTA [Concomitant]
     Dosage: DOSE AS USED: 1 TABLETTID
     Route: 048
     Dates: start: 20090519, end: 20090724
  9. PALUX [Concomitant]
     Indication: ILIAC ARTERY OCCLUSION
     Dosage: DOSE AS USED: 2 ML DOSE UNIT: 10 UG
     Route: 051
     Dates: start: 20090521, end: 20090715
  10. GASLON [Concomitant]
     Dosage: DOSE AS USED: 1 TABLET DOSE UNIT: 2 MG
     Route: 048
     Dates: start: 20090715, end: 20090724
  11. HYPEN [Concomitant]
     Indication: SCIATICA
     Dosage: DOSE AS USED: 1 TABLET
     Route: 048
     Dates: start: 20090715, end: 20090724
  12. LOXONIN [Concomitant]
     Indication: SCIATICA
     Dosage: DOSE UNIT: 60 MG
     Dates: start: 20090519, end: 20090615
  13. LOXONIN [Concomitant]
     Dosage: DOSE UNIT: 60 MG
     Dates: start: 20090626, end: 20090714
  14. METHYCOBAL [Concomitant]
     Indication: SCIATICA
     Dosage: DOSE UNIT: 500 UG
     Dates: start: 20090519, end: 20090615
  15. METHYCOBAL [Concomitant]
     Dosage: DOSE UNIT: 500 UG
     Dates: start: 20090626, end: 20090714

REACTIONS (2)
  - ARRHYTHMIA [None]
  - SCIATICA [None]
